FAERS Safety Report 5275015-4 (Version None)
Quarter: 2007Q1

REPORT INFORMATION
  Report Type: 
  Country: None (occurrence: None)
  Receive Date: 20070325
  Receipt Date: 20070316
  Transmission Date: 20070707
  Serious: Yes (Hospitalization)
  Sender: FDA-Public Use
  Company Number: GB-ALLERGAN-0702807US

PATIENT
  Age: 76 Year
  Sex: Male

DRUGS (4)
  1. TIMOLOL MALEATE [Suspect]
     Indication: GLAUCOMA
     Route: 047
  2. BRIMONIDINE UNK [Concomitant]
     Indication: GLAUCOMA
  3. DORZOLAMIDE HCL [Concomitant]
     Indication: GLAUCOMA
  4. LATANOPROST [Concomitant]
     Indication: GLAUCOMA

REACTIONS (6)
  - CONJUNCTIVAL DISORDER [None]
  - CONJUNCTIVAL OEDEMA [None]
  - DERMATITIS [None]
  - ECTROPION [None]
  - PERIORBITAL OEDEMA [None]
  - SKIN EXFOLIATION [None]
